FAERS Safety Report 9448990 (Version 1)
Quarter: 2013Q3

REPORT INFORMATION
  Report Type: Spontaneous
  Country: US (occurrence: US)
  Receive Date: 20130808
  Receipt Date: 20130808
  Transmission Date: 20140515
  Serious: Yes (Hospitalization)
  Sender: FDA-Public Use
  Company Number: US-B.I. PHARMACEUTICALS,INC./RIDGEFIELD-2013-BI-23898BP

PATIENT
  Sex: Male

DRUGS (13)
  1. TAMSULOSIN CAPSULES [Suspect]
     Indication: BENIGN PROSTATIC HYPERPLASIA
     Route: 065
  2. AVODART (DUTASTERIDE) CAPSULES [Suspect]
     Indication: BENIGN PROSTATIC HYPERPLASIA
     Dosage: 1 CAPSULE PER DAY
     Route: 048
  3. MYCOPHENOLATE MOFETIL (CELLCEPT) [Concomitant]
  4. TACROLIMUS (PROGRAF) [Concomitant]
  5. ATORVASTATIN CALCIUM (LIPITOR) [Concomitant]
  6. METOPROLOL SUCCINATE (TOPROL) [Concomitant]
  7. RAMIPRIL (ALTACE) [Concomitant]
  8. MULTIVITAMIN [Concomitant]
  9. ASPIRIN [Concomitant]
  10. HYDROCHLOROTHIAZIDE [Concomitant]
  11. PREDNISONE [Concomitant]
  12. INSULIN [Concomitant]
  13. PRANDIN [Concomitant]

REACTIONS (5)
  - Dysuria [Recovered/Resolved]
  - Bladder pain [Recovered/Resolved]
  - Asthenia [Not Recovered/Not Resolved]
  - Feeling cold [Not Recovered/Not Resolved]
  - Drug ineffective [Not Recovered/Not Resolved]
